FAERS Safety Report 4275924-9 (Version None)
Quarter: 2004Q1

REPORT INFORMATION
  Report Type: 
  Country: None (occurrence: None)
  Receive Date: 20040121
  Receipt Date: 20030319
  Transmission Date: 20041129
  Serious: No
  Sender: FDA-Public Use
  Company Number: US-GLAXOSMITHKLINE-A0400994A

PATIENT
  Age: 31 Year
  Sex: Male

DRUGS (4)
  1. VALTREX [Suspect]
     Dosage: 500MG TWICE PER DAY
     Route: 048
     Dates: start: 20021101, end: 20030101
  2. PREDNISONE [Concomitant]
  3. ASACOL [Concomitant]
  4. ZITHROMAX [Concomitant]

REACTIONS (4)
  - ASTHENIA [None]
  - BURNING SENSATION [None]
  - HYPOAESTHESIA [None]
  - NEUROPATHY PERIPHERAL [None]
